FAERS Safety Report 10080516 (Version 1)
Quarter: 2014Q2

REPORT INFORMATION
  Report Type: Spontaneous
  Country: US (occurrence: US)
  Receive Date: 20140416
  Receipt Date: 20140416
  Transmission Date: 20141212
  Serious: No
  Sender: FDA-Public Use
  Company Number: US-009507513-1404USA004316

PATIENT
  Sex: Female
  Weight: 52.15 kg

DRUGS (8)
  1. NEXPLANON [Suspect]
     Indication: CONTRACEPTION
     Dosage: ONE ROD ONCE
     Route: 059
     Dates: start: 20130222, end: 20140331
  2. KLONOPIN [Concomitant]
  3. ADDERALL TABLETS [Concomitant]
  4. WELLBUTRIN [Concomitant]
  5. PRILOSEC [Concomitant]
  6. SEROQUEL [Concomitant]
  7. PHENERGAN (PROMETHAZINE HYDROCHLORIDE) [Concomitant]
  8. NAPROXEN [Concomitant]

REACTIONS (4)
  - Pain [Unknown]
  - Menstruation irregular [Unknown]
  - Vaginal haemorrhage [Unknown]
  - Ovarian cyst [Unknown]
